FAERS Safety Report 6545351-X (Version None)
Quarter: 2010Q1

REPORT INFORMATION
  Report Type: 
  Country: None (occurrence: None)
  Receive Date: 20100121
  Receipt Date: 20091203
  Transmission Date: 20100710
  Serious: Yes (Death, Hospitalization)
  Sender: FDA-Public Use
  Company Number: CN-PFIZER INC-2009255535

PATIENT
  Age: 53 Year
  Sex: Male
  Weight: 73 kg

DRUGS (3)
  1. SUNITINIB MALATE [Suspect]
     Indication: HEPATIC NEOPLASM MALIGNANT
     Dosage: 37.5 MG, 1X/DAY
     Route: 048
     Dates: start: 20090710, end: 20090805
  2. GEFARNATE [Concomitant]
     Indication: DYSPEPSIA
     Dosage: 150 MG, 3X/DAY
     Dates: start: 20090730, end: 20090805
  3. ESOMEPRAZOLE [Concomitant]
     Indication: DYSPEPSIA
     Dosage: 20 MG, 1X/DAY
     Dates: start: 20090730, end: 20090805

REACTIONS (1)
  - JAUNDICE CHOLESTATIC [None]
